FAERS Safety Report 22361264 (Version 1)
Quarter: 2023Q2

REPORT INFORMATION
  Report Type: Spontaneous
  Country: US (occurrence: None)
  Receive Date: 20230523
  Receipt Date: 20230523
  Transmission Date: 20230721
  Serious: No
  Sender: FDA-Public Use
  Company Number: None

PATIENT
  Age: 64 Year
  Sex: Female

DRUGS (1)
  1. PROLIA [Suspect]
     Active Substance: DENOSUMAB
     Indication: Senile osteoporosis
     Dosage: OTHER FREQUENCY : Q6MONTHS;?
     Route: 058
     Dates: start: 20230202

REACTIONS (3)
  - Arthralgia [None]
  - Myalgia [None]
  - Back pain [None]

NARRATIVE: CASE EVENT DATE: 20230523
